FAERS Safety Report 21905961 (Version 3)
Quarter: 2023Q1

REPORT INFORMATION
  Report Type: Report from Study
  Country: TR (occurrence: TR)
  Receive Date: 20230124
  Receipt Date: 20230223
  Transmission Date: 20230418
  Serious: Yes (Hospitalization)
  Sender: FDA-Public Use
  Company Number: TR-ABBVIE-4279065

PATIENT
  Sex: Male
  Weight: 75 kg

DRUGS (6)
  1. CARBIDOPA\LEVODOPA [Suspect]
     Active Substance: CARBIDOPA\LEVODOPA
     Indication: Parkinson^s disease
     Dosage: MORNING DOSE (ML): 11.00 CONTINUOUS DOSE (ML): 4.70 EXTRA DOSE (ML): 1.00
     Route: 050
     Dates: start: 20190116
  2. CARBIDOPA\LEVODOPA [Suspect]
     Active Substance: CARBIDOPA\LEVODOPA
  3. CYANOCOBALAMIN\PYRIDOXINE HYDROCHLORIDE\THIAMINE [Concomitant]
     Active Substance: CYANOCOBALAMIN\PYRIDOXINE HYDROCHLORIDE\THIAMINE
     Indication: Vitamin supplementation
     Route: 048
  4. AMANTADINE SULFATE [Concomitant]
     Active Substance: AMANTADINE SULFATE
     Indication: Parkinson^s disease
     Dosage: 200 MILLIGRAM?FORM STRENGTH: 100 MILLIGRAM
     Route: 048
  5. KETYA [Concomitant]
     Indication: Antipsychotic therapy
     Dosage: 100 MILLIGRAM?FORM STRENGTH: 100 MILLIGRAM
     Route: 048
  6. DOPADEX SR [Concomitant]
     Indication: Parkinson^s disease
     Dosage: 50/200 MG
     Route: 048

REACTIONS (2)
  - Weight decreased [Recovered/Resolved]
  - Device dislocation [Recovered/Resolved]
